FAERS Safety Report 12326860 (Version 1)
Quarter: 2016Q2

REPORT INFORMATION
  Report Type: Spontaneous
  Country: US (occurrence: US)
  Receive Date: 20160503
  Receipt Date: 20160503
  Transmission Date: 20160815
  Serious: No
  Sender: FDA-Public Use
  Company Number: US-BRACCO-013132

PATIENT
  Age: 62 Year
  Sex: Female

DRUGS (3)
  1. BARIUM SULFATE [Suspect]
     Active Substance: BARIUM SULFATE
     Indication: COMPUTERISED TOMOGRAM
     Dosage: 1ST DOSE GIVEN AT 8:30 AM
     Route: 048
     Dates: start: 20160125, end: 20160125
  2. BARIUM SULPHATE [Suspect]
     Active Substance: BARIUM SULFATE
     Indication: COMPUTERISED TOMOGRAM
     Dosage: 2ND DOSE GIVEN AT 10:30 AM
     Route: 048
     Dates: start: 20160125, end: 20160125
  3. SYNTHROID [Concomitant]
     Active Substance: LEVOTHYROXINE SODIUM

REACTIONS (2)
  - Diarrhoea [Recovering/Resolving]
  - Abdominal discomfort [Recovering/Resolving]

NARRATIVE: CASE EVENT DATE: 20160125
